FAERS Safety Report 8115618-2 (Version None)
Quarter: 2012Q1

REPORT INFORMATION
  Report Type: 
  Country: None (occurrence: None)
  Receive Date: 20120124
  Receipt Date: 20120110
  Transmission Date: 20120608
  Serious: Yes (Hospitalization)
  Sender: FDA-Public Use
  Company Number: 2011PROUSA00848

PATIENT
  Age: 68 Year
  Sex: Male
  Weight: 96 kg

DRUGS (3)
  1. DENOSUMAB [Concomitant]
  2. PROVENGE [Suspect]
     Indication: PROSTATE CANCER METASTATIC
     Dosage: 250 ML, SINGLE, INTRAVENOUS
     Route: 042
     Dates: start: 20111117, end: 20111117
  3. LUPRON [Concomitant]

REACTIONS (6)
  - BRONCHITIS [None]
  - CAROTID ARTERY STENOSIS [None]
  - DYSPNOEA [None]
  - DIZZINESS [None]
  - URINARY INCONTINENCE [None]
  - NON-CARDIAC CHEST PAIN [None]
